FAERS Safety Report 11398631 (Version 2)
Quarter: 2015Q3

REPORT INFORMATION
  Report Type: Report from Study
  Country: GR (occurrence: None)
  Receive Date: 20150818
  Receipt Date: 20150824
  Transmission Date: 20151125
  Serious: Yes (Hospitalization, Other)
  Sender: FDA-Public Use
  Company Number: KAD201508-002708

PATIENT
  Age: 61 Year
  Sex: Male
  Weight: 74.8 kg

DRUGS (6)
  1. OMBITASVIR/ABT-450/RITONAVIR (OMBITASVIR,PARITAPREVIR, RITONAVIR) [Suspect]
     Active Substance: OMBITASVIR\PARITAPREVIR\RITONAVIR
     Indication: CHRONIC HEPATITIS C
     Dosage: 150/100/25 MG IN ON E DAY (1 IN 1 D)
     Route: 048
     Dates: start: 20150615
  2. MODURETIC (HYDROCHLORITHIAZIDE AMILORIDE HYDROCHLORIDE) [Concomitant]
  3. OLARTAN (OLMESARTAN MEDOXOMIL) (TABLET) (OLMESARTAN MEDOXOMIL) [Concomitant]
     Active Substance: OLMESARTAN MEDOXOMIL
  4. RIBAVIRIN 200 MG TABLETS (RIBAVIRIN) [Suspect]
     Active Substance: RIBAVIRIN
     Indication: CHRONIC HEPATITIS C
     Dosage: 1200 MG DIVIDED TWICE DAILY (200 MG, 1 IN 1 DAY)
     Route: 048
     Dates: start: 20150515, end: 20150528
  5. EUCREAS (METFORMIN HYDROCHLORIDE, VILDAGLIPTIN) (METFORMIN HYDROCHLORIDE, VILDAGLIPTIN) [Concomitant]
  6. DEPON (PARACETAMOL) [Concomitant]

REACTIONS (6)
  - Blood bilirubin unconjugated increased [None]
  - Blood triglycerides increased [None]
  - Acute coronary syndrome [None]
  - Haematocrit decreased [None]
  - Haemoglobin decreased [None]
  - Blood bilirubin increased [None]

NARRATIVE: CASE EVENT DATE: 20150629
